FAERS Safety Report 5759041-4 (Version None)
Quarter: 2008Q2

REPORT INFORMATION
  Report Type: 
  Country: None (occurrence: None)
  Receive Date: 20080602
  Receipt Date: 20080513
  Transmission Date: 20081010
  Serious: Yes (Other)
  Sender: FDA-Public Use
  Company Number: 062-20785-08050269

PATIENT
  Age: 71 Year
  Sex: Female

DRUGS (5)
  1. THALIDOMIDE - PAHRMION (THALIDOMIDE) (CAPSULES) [Suspect]
     Indication: MULTIPLE MYELOMA
     Dosage: 100 MG, DAILY, ORAL
     Route: 048
     Dates: start: 20070901
  2. ZOMETA [Concomitant]
  3. EVISTA [Concomitant]
  4. CALCIMAGON (CALCIUM CARBONATE) [Concomitant]
  5. ATACAND [Concomitant]

REACTIONS (4)
  - APHASIA [None]
  - DISTURBANCE IN ATTENTION [None]
  - MEMORY IMPAIRMENT [None]
  - TRANSIENT ISCHAEMIC ATTACK [None]
